FAERS Safety Report 21770569 (Version 2)
Quarter: 2023Q1

REPORT INFORMATION
  Report Type: Report from Study
  Country: US (occurrence: US)
  Receive Date: 20221223
  Receipt Date: 20230119
  Transmission Date: 20230418
  Serious: Yes (Other)
  Sender: FDA-Public Use
  Company Number: US-UCBSA-2022055232

PATIENT
  Sex: Male

DRUGS (1)
  1. CERTOLIZUMAB PEGOL [Suspect]
     Active Substance: CERTOLIZUMAB PEGOL
     Indication: Rheumatoid arthritis
     Dosage: 200 MILLIGRAM, EV 2 WEEKS(QOW)
     Dates: start: 20220717

REACTIONS (5)
  - Cellulitis [Not Recovered/Not Resolved]
  - Rheumatoid arthritis [Unknown]
  - Injection site urticaria [Recovered/Resolved]
  - Rash macular [Unknown]
  - Nodule [Unknown]

NARRATIVE: CASE EVENT DATE: 20220101
